FAERS Safety Report 22305220 (Version 1)
Quarter: 2023Q2

REPORT INFORMATION
  Report Type: Spontaneous
  Country: US (occurrence: US)
  Receive Date: 20230510
  Receipt Date: 20230510
  Transmission Date: 20230722
  Serious: No
  Sender: FDA-Public Use
  Company Number: US-PFIZER INC-202300181286

PATIENT
  Age: 47 Year
  Sex: Female
  Weight: 85.28 kg

DRUGS (2)
  1. PAXLOVID [Suspect]
     Active Substance: NIRMATRELVIR\RITONAVIR
     Indication: COVID-19 treatment
     Dosage: UNK
     Dates: start: 202209, end: 202209
  2. CLARITIN [Concomitant]
     Active Substance: LORATADINE
     Indication: Hypersensitivity
     Dosage: 10 MG

REACTIONS (3)
  - Alopecia scarring [Not Recovered/Not Resolved]
  - Dandruff [Unknown]
  - Pruritus [Unknown]
